FAERS Safety Report 7246122-1 (Version None)
Quarter: 2011Q1

REPORT INFORMATION
  Report Type: 
  Country: None (occurrence: None)
  Receive Date: 20110126
  Receipt Date: 20110119
  Transmission Date: 20110831
  Serious: Yes (Hospitalization)
  Sender: FDA-Public Use
  Company Number: A0908720A

PATIENT
  Sex: Female

DRUGS (2)
  1. ATIVAN [Suspect]
  2. PAXIL [Suspect]
     Indication: DEPRESSION
     Route: 048
     Dates: end: 20030101

REACTIONS (10)
  - DRUG INEFFECTIVE [None]
  - CHEST PAIN [None]
  - ELECTRIC SHOCK [None]
  - DIZZINESS [None]
  - SUICIDAL IDEATION [None]
  - WITHDRAWAL SYNDROME [None]
  - CONFUSIONAL STATE [None]
  - INTENTIONAL SELF-INJURY [None]
  - INSOMNIA [None]
  - MEMORY IMPAIRMENT [None]
